FAERS Safety Report 6635449-X (Version None)
Quarter: 2010Q1

REPORT INFORMATION
  Report Type: 
  Country: None (occurrence: None)
  Receive Date: 20100315
  Receipt Date: 20090811
  Transmission Date: 20100710
  Serious: No
  Sender: FDA-Public Use
  Company Number: US-ABBOTT-09P-163-0591219-00

PATIENT
  Sex: Female

DRUGS (1)
  1. DEPAKOTE [Suspect]
     Indication: DRUG USE FOR UNKNOWN INDICATION
     Dosage: UNKNOWN DOSE

REACTIONS (3)
  - ARTHRALGIA [None]
  - ILL-DEFINED DISORDER [None]
  - TREMOR [None]
